FAERS Safety Report 23336675 (Version 5)
Quarter: 2024Q1

REPORT INFORMATION
  Report Type: Spontaneous
  Country: US (occurrence: US)
  Receive Date: 20231226
  Receipt Date: 20240306
  Transmission Date: 20240410
  Serious: No
  Sender: FDA-Public Use
  Company Number: US-UNITED THERAPEUTICS-UNT-2023-034015

PATIENT
  Sex: Male

DRUGS (6)
  1. REMODULIN [Suspect]
     Active Substance: TREPROSTINIL
     Indication: Pulmonary arterial hypertension
     Dosage: 0.04958 ?G/KG, CONTINUING
     Route: 058
     Dates: start: 2023, end: 20231215
  2. REMODULIN [Suspect]
     Active Substance: TREPROSTINIL
     Dosage: UNK, CONTINUING (AT RATE OF 16 UL/HR)
     Route: 058
     Dates: start: 20231217
  3. REMODULIN [Suspect]
     Active Substance: TREPROSTINIL
     Dosage: UNK, CONTINUING
     Route: 058
     Dates: start: 202301
  4. REMODULIN [Suspect]
     Active Substance: TREPROSTINIL
     Indication: Pulmonary arterial hypertension
     Dosage: 0.03777 ?G/KG, CONTINUING
     Route: 058
  5. REMODULIN [Suspect]
     Active Substance: TREPROSTINIL
     Dosage: UNK, CONTINUING
     Route: 058
  6. LECITHIN\POLOXAMER 407 [Concomitant]
     Active Substance: LECITHIN\POLOXAMER 407
     Indication: Product used for unknown indication
     Route: 065

REACTIONS (16)
  - Dizziness [Recovered/Resolved]
  - Dyspnoea [Recovered/Resolved]
  - Headache [Recovered/Resolved]
  - Pain in extremity [Recovered/Resolved]
  - Device failure [Recovered/Resolved]
  - Infusion site pain [Not Recovered/Not Resolved]
  - Arthralgia [Recovered/Resolved]
  - Infusion site discharge [Not Recovered/Not Resolved]
  - Ankle fracture [Recovered/Resolved]
  - Infusion site erythema [Not Recovered/Not Resolved]
  - Device maintenance issue [Unknown]
  - Infusion site vesicles [Recovered/Resolved]
  - Incorrect dose administered [Unknown]
  - Dyspnoea exertional [Recovered/Resolved]
  - Device leakage [Not Recovered/Not Resolved]
  - Road traffic accident [Recovered/Resolved]

NARRATIVE: CASE EVENT DATE: 20230101
